FAERS Safety Report 15721266 (Version 3)
Quarter: 2022Q2

REPORT INFORMATION
  Report Type: Other
  Country: US (occurrence: None)
  Receive Date: 20181214
  Receipt Date: 20220503
  Transmission Date: 20220721
  Serious: Yes (Hospitalization, Other)
  Sender: FDA-Public Use
  Company Number: US-ROCHE-2226436

PATIENT
  Age: 57 Year
  Sex: Female
  Weight: 127.12 kg

DRUGS (13)
  1. OCREVUS [Suspect]
     Active Substance: OCRELIZUMAB
     Indication: Relapsing-remitting multiple sclerosis
     Dosage: DATES OF OCRALIZUMAB INFUSION RECEIVED: 06/AUG/2018, 09/JAN/2019, 21/JAN/2019, 5/JUL/2019, 13/DEC/20
     Route: 042
     Dates: start: 20180119
  2. OCREVUS [Suspect]
     Active Substance: OCRELIZUMAB
     Route: 042
     Dates: start: 201901
  3. SOLU-MEDROL [Suspect]
     Active Substance: METHYLPREDNISOLONE SODIUM SUCCINATE
     Indication: Multiple sclerosis relapse
     Route: 042
     Dates: start: 20220317, end: 20220321
  4. XANAX [Concomitant]
     Active Substance: ALPRAZOLAM
  5. VIIBRYD [Concomitant]
     Active Substance: VILAZODONE HYDROCHLORIDE
  6. BACLOFEN [Concomitant]
     Active Substance: BACLOFEN
  7. VERAPAMIL [Concomitant]
     Active Substance: VERAPAMIL HYDROCHLORIDE
  8. MIRABEGRON [Concomitant]
     Active Substance: MIRABEGRON
  9. XARELTO [Concomitant]
     Active Substance: RIVAROXABAN
  10. REPATHA [Concomitant]
     Active Substance: EVOLOCUMAB
  11. FENOFIBRATE [Concomitant]
     Active Substance: FENOFIBRATE
  12. EMGALITY [Concomitant]
     Active Substance: GALCANEZUMAB-GNLM
  13. METFORMIN [Concomitant]
     Active Substance: METFORMIN HYDROCHLORIDE

REACTIONS (9)
  - Urinary tract infection [Recovered/Resolved]
  - Muscular weakness [Unknown]
  - Pyrexia [Unknown]
  - Nephrolithiasis [Unknown]
  - Fall [Unknown]
  - Multiple sclerosis relapse [Not Recovered/Not Resolved]
  - Stress [Not Recovered/Not Resolved]
  - Blood glucose increased [Recovered/Resolved]
  - Blood cholesterol abnormal [Not Recovered/Not Resolved]

NARRATIVE: CASE EVENT DATE: 20180901
